FAERS Safety Report 8763825 (Version 1)
Quarter: 2012Q4

REPORT INFORMATION
  Report Type: Spontaneous
  Country: US (occurrence: None)
  Receive Date: 20120831
  Receipt Date: 20120831
  Transmission Date: 20130627
  Serious: Yes (Hospitalization)
  Sender: FDA-Public Use
  Company Number: None

PATIENT
  Age: 87 Year
  Sex: Female
  Weight: 63 kg

DRUGS (1)
  1. PRADAXA [Suspect]

REACTIONS (3)
  - Haematochezia [None]
  - Defaecation urgency [None]
  - Abdominal discomfort [None]
